FAERS Safety Report 21266151 (Version 3)
Quarter: 2022Q3

REPORT INFORMATION
  Report Type: Spontaneous
  Country: US (occurrence: US)
  Receive Date: 20220829
  Receipt Date: 20220921
  Transmission Date: 20221027
  Serious: No
  Sender: FDA-Public Use
  Company Number: US-PFIZER INC-202201093653

PATIENT
  Age: 3 Year
  Sex: Male
  Weight: 65.77 kg

DRUGS (2)
  1. DOXYCYCLINE HYCLATE [Suspect]
     Active Substance: DOXYCYCLINE HYCLATE
     Indication: Pyrexia
     Dosage: UNK
     Route: 042
     Dates: start: 200509, end: 200509
  2. DOXYCYCLINE HYCLATE [Suspect]
     Active Substance: DOXYCYCLINE HYCLATE
     Indication: Rocky mountain spotted fever

REACTIONS (6)
  - Attention deficit hyperactivity disorder [Unknown]
  - Bruxism [Unknown]
  - Growth disorder [Unknown]
  - Tooth discolouration [Not Recovered/Not Resolved]
  - Tooth hypoplasia [Not Recovered/Not Resolved]
  - Tooth injury [Unknown]

NARRATIVE: CASE EVENT DATE: 20080101
